FAERS Safety Report 7070277-5 (Version None)
Quarter: 2010Q4

REPORT INFORMATION
  Report Type: 
  Country: None (occurrence: None)
  Receive Date: 20101028
  Receipt Date: 20101012
  Transmission Date: 20110411
  Serious: No
  Sender: FDA-Public Use
  Company Number: US-WYE-H18130810

PATIENT
  Age: 48 Year
  Sex: Female
  Weight: 64.92 kg

DRUGS (1)
  1. ADVIL [Suspect]
     Indication: INSOMNIA
     Route: 048
     Dates: start: 20100901, end: 20101001

REACTIONS (1)
  - DIZZINESS [None]
